FAERS Safety Report 25480397 (Version 1)
Quarter: 2025Q2

REPORT INFORMATION
  Report Type: Spontaneous
  Country: CA (occurrence: CA)
  Receive Date: 20250625
  Receipt Date: 20250625
  Transmission Date: 20250717
  Serious: Yes (Other)
  Sender: PFIZER
  Company Number: CA-PFIZER INC-202500127233

PATIENT
  Age: 82 Year
  Sex: Female

DRUGS (2)
  1. VYNDAMAX [Suspect]
     Active Substance: TAFAMIDIS
     Indication: Cardiac amyloidosis
     Dosage: 61 MG, 1X/DAY
     Route: 048
     Dates: start: 20240320, end: 2025
  2. TRIAMTERENE [Concomitant]
     Active Substance: TRIAMTERENE
     Dosage: 25 MG, 1X/DAY

REACTIONS (1)
  - Polyneuropathy [Unknown]
